FAERS Safety Report 24654734 (Version 1)
Quarter: 2024Q4

REPORT INFORMATION
  Report Type: Spontaneous
  Country: CA (occurrence: CA)
  Receive Date: 20241122
  Receipt Date: 20241122
  Transmission Date: 20250115
  Serious: Yes (Other)
  Sender: PFIZER
  Company Number: CA-PFIZER INC-202400304724

PATIENT
  Age: 83 Year
  Sex: Female

DRUGS (7)
  1. RUXIENCE [Suspect]
     Active Substance: RITUXIMAB-PVVR
     Indication: Rheumatoid arthritis
     Dosage: 500 MG DAY 1 AND 15
     Route: 042
     Dates: start: 20211112, end: 20211129
  2. RUXIENCE [Suspect]
     Active Substance: RITUXIMAB-PVVR
     Dosage: 500 MG DAY 1 AND 15
     Route: 042
     Dates: start: 20221216, end: 20221230
  3. RUXIENCE [Suspect]
     Active Substance: RITUXIMAB-PVVR
     Dosage: 500 MG DAY 1 AND 15
     Route: 042
     Dates: start: 20231204, end: 20231219
  4. RUXIENCE [Suspect]
     Active Substance: RITUXIMAB-PVVR
     Dosage: 500 MG SUBSEQUENT DAY 1 (DAY 1 AND 15)
     Route: 042
     Dates: start: 20241115
  5. METHOTREXATE [Concomitant]
     Active Substance: METHOTREXATE
     Dosage: 1 DF DOSAGE INFO:  UNKNOWN
     Route: 065
  6. ENBREL [Concomitant]
     Active Substance: ETANERCEPT
     Dosage: 1 DF DOSAGE INFO: UNKNOWN
     Route: 065
  7. RISEDRONATE SODIUM [Concomitant]
     Active Substance: RISEDRONATE SODIUM
     Dosage: UNK

REACTIONS (5)
  - Pruritus [Recovered/Resolved with Sequelae]
  - Ear pruritus [Recovered/Resolved with Sequelae]
  - Hot flush [Recovering/Resolving]
  - Off label use [Unknown]
  - Intentional product use issue [Unknown]

NARRATIVE: CASE EVENT DATE: 20241115
